FAERS Safety Report 11880917 (Version 3)
Quarter: 2016Q2

REPORT INFORMATION
  Report Type: Report from Study
  Country: DE (occurrence: DE)
  Receive Date: 20151230
  Receipt Date: 20160411
  Transmission Date: 20160815
  Serious: Yes (Hospitalization)
  Sender: FDA-Public Use
  Company Number: DE-ABBVIE-15K-062-1526113-00

PATIENT
  Age: 46 Year
  Sex: Female
  Weight: 50 kg

DRUGS (1)
  1. HUMIRA [Suspect]
     Active Substance: ADALIMUMAB
     Indication: PSORIATIC ARTHROPATHY
     Route: 058
     Dates: start: 20140901, end: 20151222

REACTIONS (9)
  - Pharyngeal oedema [Not Recovered/Not Resolved]
  - Lymphadenitis [Unknown]
  - Lymphadenopathy [Not Recovered/Not Resolved]
  - Influenza [Not Recovered/Not Resolved]
  - Pyrexia [Not Recovered/Not Resolved]
  - Abscess soft tissue [Unknown]
  - Malaise [Not Recovered/Not Resolved]
  - Muscle swelling [Not Recovered/Not Resolved]
  - Soft tissue infection [Unknown]

NARRATIVE: CASE EVENT DATE: 201512
